FAERS Safety Report 9949338 (Version 1)
Quarter: 2014Q1

REPORT INFORMATION
  Report Type: Report from Study
  Country: US (occurrence: US)
  Receive Date: 20140304
  Receipt Date: 20140304
  Transmission Date: 20141002
  Serious: No
  Sender: FDA-Public Use
  Company Number: US-ABBVIE-13P-163-1066847-00

PATIENT
  Age: 63 Year
  Sex: Female

DRUGS (6)
  1. HUMIRA [Suspect]
     Indication: GRANULOMA ANNULARE
     Dates: start: 20130228
  2. LEVOTHYROXINE [Concomitant]
     Indication: HYPOTHYROIDISM
  3. LEVOTHYROXINE [Concomitant]
     Indication: AUTOIMMUNE THYROIDITIS
  4. DIOVAN [Concomitant]
     Indication: BLOOD PRESSURE INCREASED
  5. ESTROGEN [Concomitant]
     Indication: HORMONE REPLACEMENT THERAPY
  6. PROGESTERONE [Concomitant]
     Indication: HORMONE REPLACEMENT THERAPY

REACTIONS (2)
  - Eye discharge [Not Recovered/Not Resolved]
  - Eye swelling [Not Recovered/Not Resolved]
